FAERS Safety Report 7818909-5 (Version None)
Quarter: 2011Q4

REPORT INFORMATION
  Report Type: 
  Country: None (occurrence: None)
  Receive Date: 20111018
  Receipt Date: 20111005
  Transmission Date: 20120403
  Serious: Yes (Hospitalization, Other)
  Sender: FDA-Public Use
  Company Number: FR-AMGEN-FRASP2011040787

PATIENT
  Age: 23 Year
  Sex: Female

DRUGS (5)
  1. ENBREL [Suspect]
     Dosage: UNK
     Dates: start: 20101001, end: 20101201
  2. IMMUNE GLOBULIN (HUMAN) [Suspect]
     Dosage: 6 VIALS
     Route: 042
     Dates: start: 20110725
  3. ENBREL [Suspect]
     Indication: RHEUMATOID ARTHRITIS
     Dosage: UNK
     Dates: start: 20081101, end: 20100101
  4. RITUXIMAB [Suspect]
     Dosage: 250 MG INFUSION
  5. IMMUNE GLOBULIN (HUMAN) [Suspect]
     Dosage: UNKNOWN
     Route: 042
     Dates: start: 20110722

REACTIONS (6)
  - IDIOPATHIC THROMBOCYTOPENIC PURPURA [None]
  - EPISCLERITIS [None]
  - HYPERSENSITIVITY [None]
  - FACE OEDEMA [None]
  - PRURITUS [None]
  - ARTHRODESIS [None]
